FAERS Safety Report 6575891-9 (Version None)
Quarter: 2010Q1

REPORT INFORMATION
  Report Type: 
  Country: None (occurrence: None)
  Receive Date: 20100209
  Receipt Date: 20100128
  Transmission Date: 20100710
  Serious: Yes (Hospitalization)
  Sender: FDA-Public Use
  Company Number: FR-B.I. PHARMACEUTICALS,INC./RIDGEFIELD-2010-FF-00090FF

PATIENT
  Sex: Female

DRUGS (2)
  1. CLONIDINE HCL [Suspect]
     Indication: LOCAL ANAESTHESIA
     Dates: start: 20081202, end: 20081202
  2. NAROPIN [Suspect]
     Indication: LOCAL ANAESTHESIA
     Dates: start: 20081202, end: 20081202

REACTIONS (4)
  - GAIT DISTURBANCE [None]
  - MEDICATION ERROR [None]
  - NEUROPATHY PERIPHERAL [None]
  - PAIN IN EXTREMITY [None]
